FAERS Safety Report 17215149 (Version 1)
Quarter: 2019Q4

REPORT INFORMATION
  Report Type: Report from Study
  Country: TH (occurrence: TH)
  Receive Date: 20191230
  Receipt Date: 20191230
  Transmission Date: 20200122
  Serious: Yes (Other)
  Sender: FDA-Public Use
  Company Number: TH-MYLANLABS-2019M1131376

PATIENT
  Age: 65 Year
  Sex: Female

DRUGS (15)
  1. RIFAMPICIN [Suspect]
     Active Substance: RIFAMPIN
     Indication: ATYPICAL MYCOBACTERIAL INFECTION
  2. LEVOFLOXACIN. [Suspect]
     Active Substance: LEVOFLOXACIN
     Indication: KERATITIS
  3. LEVOFLOXACIN. [Suspect]
     Active Substance: LEVOFLOXACIN
     Indication: ATYPICAL MYCOBACTERIAL INFECTION
  4. RIFAMPICIN [Suspect]
     Active Substance: RIFAMPIN
     Indication: KERATITIS
  5. LEVOFLOXACIN. [Suspect]
     Active Substance: LEVOFLOXACIN
     Indication: SCLERITIS
     Route: 065
  6. LINEZOLID. [Suspect]
     Active Substance: LINEZOLID
     Indication: ATYPICAL MYCOBACTERIAL INFECTION
  7. IMIPENEM [Suspect]
     Active Substance: IMIPENEM
     Indication: KERATITIS
  8. IMIPENEM [Suspect]
     Active Substance: IMIPENEM
     Indication: ATYPICAL MYCOBACTERIAL INFECTION
  9. LINEZOLID. [Suspect]
     Active Substance: LINEZOLID
     Indication: KERATITIS
  10. IMIPENEM [Suspect]
     Active Substance: IMIPENEM
     Indication: SCLERITIS
     Route: 065
  11. CLARITHROMYCIN. [Suspect]
     Active Substance: CLARITHROMYCIN
     Indication: SCLERITIS
     Route: 065
  12. CLARITHROMYCIN. [Suspect]
     Active Substance: CLARITHROMYCIN
     Indication: KERATITIS
  13. CLARITHROMYCIN. [Suspect]
     Active Substance: CLARITHROMYCIN
     Indication: ATYPICAL MYCOBACTERIAL INFECTION
  14. RIFAMPICIN [Suspect]
     Active Substance: RIFAMPIN
     Indication: SCLERITIS
     Route: 065
  15. LINEZOLID. [Suspect]
     Active Substance: LINEZOLID
     Indication: SCLERITIS
     Route: 065

REACTIONS (1)
  - Treatment failure [Unknown]
